FAERS Safety Report 4889773-1 (Version None)
Quarter: 2006Q1

REPORT INFORMATION
  Report Type: 
  Country: None (occurrence: None)
  Receive Date: 20060124
  Receipt Date: 20051005
  Transmission Date: 20060701
  Serious: Yes (Death)
  Sender: FDA-Public Use
  Company Number: US-MERCK-0510USA03402

PATIENT
  Age: 54 Year
  Sex: Male
  Weight: 89 kg

DRUGS (7)
  1. VIOXX [Suspect]
     Indication: ARTHRALGIA
     Route: 048
     Dates: end: 20040112
  2. INSULIN [Concomitant]
     Route: 065
  3. LOTREL [Concomitant]
     Route: 065
  4. RANITIDINE [Concomitant]
     Route: 065
  5. NEXIUM [Concomitant]
     Route: 065
  6. LIPITOR [Concomitant]
     Route: 065
  7. ASPIRIN [Concomitant]
     Route: 065

REACTIONS (3)
  - ARTERIOSCLEROSIS CORONARY ARTERY [None]
  - CARDIOMEGALY [None]
  - MYOCARDIAL INFARCTION [None]
